FAERS Safety Report 6402713-9 (Version None)
Quarter: 2009Q4

REPORT INFORMATION
  Report Type: 
  Country: None (occurrence: None)
  Receive Date: 20091013
  Receipt Date: 20090928
  Transmission Date: 20100525
  Serious: Yes (Hospitalization)
  Sender: FDA-Public Use
  Company Number: 220011M09USA

PATIENT
  Age: 12 Year
  Sex: Male
  Weight: 61 kg

DRUGS (4)
  1. SAIZEN [Suspect]
     Indication: GROWTH HORMONE DEFICIENCY
     Dosage: 1.5 MG, 1 IN 1 DAYS, 1 IN 1 DAYS
     Dates: start: 20090420, end: 20090915
  2. SAIZEN [Suspect]
     Indication: GROWTH HORMONE DEFICIENCY
     Dosage: 1.5 MG, 1 IN 1 DAYS, 1 IN 1 DAYS
     Dates: start: 20090928
  3. SYNTHROID [Concomitant]
  4. DESMOPRESSIN ACETATE [Concomitant]

REACTIONS (1)
  - EPIPHYSIOLYSIS [None]
